FAERS Safety Report 16868690 (Version 2)
Quarter: 2019Q4

REPORT INFORMATION
  Report Type: Spontaneous
  Country: FR (occurrence: FR)
  Receive Date: 20190930
  Receipt Date: 20191001
  Transmission Date: 20200122
  Serious: Yes (Hospitalization)
  Sender: FDA-Public Use
  Company Number: FR-MYLANLABS-2019M1090156

PATIENT
  Age: 80 Year
  Sex: Female
  Weight: 44.2 kg

DRUGS (5)
  1. MIANSERINE ARROW [Suspect]
     Active Substance: MIANSERIN HYDROCHLORIDE
     Indication: DEPRESSION
     Dosage: 90 MILLIGRAM, QD (1-0-2)
     Route: 048
     Dates: start: 20181003, end: 20190107
  2. MELATONINE [Suspect]
     Active Substance: MELATONIN
     Indication: SOMNOLENCE
     Dosage: 5 MILLIGRAM, QD (0-0-1)
     Route: 048
     Dates: start: 20181003
  3. LOSARTAN. [Suspect]
     Active Substance: LOSARTAN
     Indication: HYPERTENSION
     Dosage: 50 MILLIGRAM, QD (1-0-0)
     Route: 048
     Dates: start: 20181003
  4. LOXAPAC                            /00401802/ [Suspect]
     Active Substance: LOXAPINE SUCCINATE
     Indication: BEHAVIOUR DISORDER
     Dosage: 7 DROP, QD ((25MG/ML)-2-2-3 (GOUTTES))
     Route: 048
     Dates: start: 20190102, end: 20190107
  5. DEPAKINE                           /00228502/ [Suspect]
     Active Substance: VALPROATE SODIUM
     Indication: BEHAVIOUR DISORDER
     Dosage: 1100 MILLIGRAM, QD ((200MG/ML) 300MG-300MG-500MG)
     Route: 048
     Dates: start: 20181003, end: 20190107

REACTIONS (1)
  - Sedation complication [Recovered/Resolved]

NARRATIVE: CASE EVENT DATE: 20190107
